FAERS Safety Report 22843120 (Version 23)
Quarter: 2025Q4

REPORT INFORMATION
  Report Type: Report from Study
  Country: CA (occurrence: CA)
  Receive Date: 20230821
  Receipt Date: 20251027
  Transmission Date: 20260117
  Serious: Yes (Hospitalization, Other)
  Sender: TAKEDA
  Company Number: CA-TAKEDA-2022TUS079169

PATIENT
  Age: 26 Year
  Sex: Male

DRUGS (17)
  1. VEDOLIZUMAB [Suspect]
     Active Substance: VEDOLIZUMAB
     Indication: Crohn^s disease
     Dosage: 300 MILLIGRAM
  2. VEDOLIZUMAB [Suspect]
     Active Substance: VEDOLIZUMAB
     Dosage: 300 MILLIGRAM, Q4WEEKS
     Dates: start: 20180621
  3. VEDOLIZUMAB [Suspect]
     Active Substance: VEDOLIZUMAB
     Indication: Crohn^s disease
     Dosage: 108 MILLIGRAM, Q2WEEKS
     Dates: start: 20220715
  4. VEDOLIZUMAB [Suspect]
     Active Substance: VEDOLIZUMAB
     Dosage: 108 MILLIGRAM, Q2WEEKS
  5. VEDOLIZUMAB [Suspect]
     Active Substance: VEDOLIZUMAB
     Dosage: 108 MILLIGRAM, 1/WEEK
     Dates: start: 20230223
  6. VEDOLIZUMAB [Suspect]
     Active Substance: VEDOLIZUMAB
     Dosage: 108 MILLIGRAM, 1/WEEK
  7. VEDOLIZUMAB [Suspect]
     Active Substance: VEDOLIZUMAB
     Dosage: 108 MILLIGRAM, 1/WEEK
  8. VEDOLIZUMAB [Suspect]
     Active Substance: VEDOLIZUMAB
     Dosage: 108 MILLIGRAM, 1/WEEK
  9. VEDOLIZUMAB [Suspect]
     Active Substance: VEDOLIZUMAB
     Dosage: 108 MILLIGRAM, 1/WEEK
  10. VEDOLIZUMAB [Suspect]
     Active Substance: VEDOLIZUMAB
     Dosage: 108 MILLIGRAM, 1/WEEK
  11. ASACOL [Concomitant]
     Active Substance: MESALAMINE
     Dosage: UNK
  12. ZOPICLONE [Concomitant]
     Active Substance: ZOPICLONE
     Indication: Sleep disorder
     Dosage: UNK
  13. IRON [Concomitant]
     Active Substance: IRON
     Dosage: UNK
  14. IRON [Concomitant]
     Active Substance: IRON
     Dosage: UNK
  15. IRON [Concomitant]
     Active Substance: IRON
     Dosage: UNK
  16. VITAMIN D [Concomitant]
     Active Substance: VITAMIN D NOS
     Dosage: UNK
  17. SODIUM BICARBONATE [Concomitant]
     Active Substance: SODIUM BICARBONATE
     Dosage: UNK

REACTIONS (16)
  - Cellulitis [Unknown]
  - Haematochezia [Unknown]
  - Respiratory failure [Unknown]
  - Decubitus ulcer [Recovered/Resolved]
  - Infection [Unknown]
  - Crohn^s disease [Unknown]
  - Pneumonia aspiration [Unknown]
  - Clostridium difficile infection [Recovered/Resolved]
  - Ear infection [Unknown]
  - Salmonella sepsis [Unknown]
  - Product dose omission issue [Unknown]
  - Gastrointestinal sounds abnormal [Unknown]
  - Pain [Unknown]
  - Faeces hard [Unknown]
  - Discomfort [Unknown]
  - Frequent bowel movements [Unknown]
